FAERS Safety Report 6979540-7 (Version None)
Quarter: 2010Q3

REPORT INFORMATION
  Report Type: 
  Country: None (occurrence: None)
  Receive Date: 20100913
  Receipt Date: 20100907
  Transmission Date: 20110219
  Serious: Yes (Death, Hospitalization)
  Sender: FDA-Public Use
  Company Number: PHHY2010AR59277

PATIENT
  Sex: Male

DRUGS (1)
  1. DIOVAN [Suspect]
     Dosage: 1 TABLET (160 MG) DAILY
     Route: 048
     Dates: start: 20100429

REACTIONS (3)
  - CARDIAC OPERATION [None]
  - INFARCTION [None]
  - LUNG INFECTION [None]
